FAERS Safety Report 6256598-4 (Version None)
Quarter: 2009Q3

REPORT INFORMATION
  Report Type: 
  Country: None (occurrence: None)
  Receive Date: 20090706
  Receipt Date: 20090626
  Transmission Date: 20100115
  Serious: Yes (Hospitalization, Other)
  Sender: FDA-Public Use
  Company Number: CH-JNJFOC-20090608740

PATIENT
  Age: 30 Year
  Sex: Female

DRUGS (27)
  1. HALDOL [Suspect]
     Route: 048
  2. HALDOL [Suspect]
     Route: 048
  3. HALDOL [Suspect]
     Indication: SCHIZOPHRENIA, PARANOID TYPE
     Route: 048
  4. LEPONEX [Suspect]
     Route: 048
  5. LEPONEX [Suspect]
     Route: 048
  6. LEPONEX [Suspect]
     Route: 048
  7. LEPONEX [Suspect]
     Route: 048
  8. LEPONEX [Suspect]
     Route: 048
  9. LEPONEX [Suspect]
     Route: 048
  10. LEPONEX [Suspect]
     Route: 048
  11. LEPONEX [Suspect]
     Indication: DRUG USE FOR UNKNOWN INDICATION
     Route: 048
  12. TEMESTA [Suspect]
     Route: 048
  13. TEMESTA [Suspect]
     Route: 048
  14. TEMESTA [Suspect]
     Route: 048
  15. TEMESTA [Suspect]
     Route: 048
  16. TEMESTA [Suspect]
     Route: 048
  17. TEMESTA [Suspect]
     Route: 048
  18. TEMESTA [Suspect]
     Indication: SCHIZOPHRENIA, PARANOID TYPE
     Route: 048
  19. INVEGA [Concomitant]
     Route: 048
  20. INVEGA [Concomitant]
     Indication: SCHIZOPHRENIA, PARANOID TYPE
     Route: 048
  21. FERRO SANOL [Concomitant]
     Route: 048
  22. MAGNESIUM ASPARTATE HYDROCHLORIDE [Concomitant]
     Route: 048
  23. ABILIFY [Concomitant]
     Route: 048
  24. ABILIFY [Concomitant]
     Route: 048
  25. ABILIFY [Concomitant]
     Route: 048
  26. ABILIFY [Concomitant]
     Route: 048
  27. ABILIFY [Concomitant]
     Indication: SCHIZOPHRENIA, PARANOID TYPE
     Route: 048

REACTIONS (4)
  - DELIRIUM [None]
  - FATIGUE [None]
  - PSYCHOMOTOR RETARDATION [None]
  - SCHIZOPHRENIA [None]
